FAERS Safety Report 6792089-X (Version None)
Quarter: 2010Q2

REPORT INFORMATION
  Report Type: 
  Country: None (occurrence: None)
  Receive Date: 20100624
  Receipt Date: 20090625
  Transmission Date: 20101027
  Serious: Yes (Other)
  Sender: FDA-Public Use
  Company Number: US-PFIZER INC-2008060868

PATIENT
  Sex: Female
  Weight: 54 kg

DRUGS (7)
  1. MEDROXYPROGESTERONE ACETATE [Suspect]
     Indication: HORMONE REPLACEMENT THERAPY
     Dosage: 10 MG, UNK
     Route: 048
     Dates: start: 19970301, end: 19980901
  2. MEDROXYPROGESTERONE ACETATE [Suspect]
     Dosage: 2.5 MG, UNK
     Route: 048
     Dates: start: 19980901, end: 19991201
  3. OGEN [Suspect]
     Indication: HORMONE REPLACEMENT THERAPY
     Route: 048
     Dates: start: 19980901, end: 19991201
  4. ESTROPIPATE [Suspect]
     Indication: HORMONE REPLACEMENT THERAPY
     Route: 048
     Dates: start: 19980901, end: 19991201
  5. PREMARIN [Suspect]
     Indication: HORMONE REPLACEMENT THERAPY
     Dosage: 0.625 MG, UNK
     Dates: start: 19970301, end: 19970601
  6. PREMARIN [Suspect]
     Dosage: 1.25 MG, UNK
     Dates: start: 19970601, end: 19980901
  7. ESTROPIPATE [Suspect]
     Dosage: 0.75 MG, UNK
     Dates: start: 19980901, end: 19991201

REACTIONS (1)
  - BREAST CANCER FEMALE [None]
